FAERS Safety Report 12584022 (Version 1)
Quarter: 2016Q3

REPORT INFORMATION
  Report Type: Spontaneous
  Country: DE (occurrence: DE)
  Receive Date: 20160722
  Receipt Date: 20160722
  Transmission Date: 20161109
  Serious: Yes (Death, Life-Threatening, Other)
  Sender: FDA-Public Use
  Company Number: DE-MYLANLABS-2016M1030087

PATIENT

DRUGS (2)
  1. BUPRENORPHINE. [Suspect]
     Active Substance: BUPRENORPHINE
     Indication: PRODUCT USED FOR UNKNOWN INDICATION
     Dosage: UNK
     Route: 065
  2. LOPERAMIDE [Suspect]
     Active Substance: LOPERAMIDE
     Indication: PRODUCT USED FOR UNKNOWN INDICATION
     Dosage: UNK
     Route: 065

REACTIONS (10)
  - Cardiomegaly [Fatal]
  - Seizure [Unknown]
  - Toxicity to various agents [Fatal]
  - Apnoea [Unknown]
  - Pulse absent [Unknown]
  - Deep vein thrombosis [Fatal]
  - Pulmonary oedema [Fatal]
  - Brain oedema [Fatal]
  - Unresponsive to stimuli [Unknown]
  - Urinary retention [Fatal]
